FAERS Safety Report 13246394 (Version 1)
Quarter: 2017Q1

REPORT INFORMATION
  Report Type: Spontaneous
  Country: US (occurrence: US)
  Receive Date: 20170217
  Receipt Date: 20170217
  Transmission Date: 20170428
  Serious: Yes (Other)
  Sender: FDA-Public Use
  Company Number: US-JNJFOC-20151014064

PATIENT
  Sex: Male

DRUGS (1)
  1. RISPERDAL [Suspect]
     Active Substance: RISPERIDONE
     Indication: MENTAL DISORDER
     Dosage: RISPERDAL WAS GIVEN AT A VARYING DOSES OF 4 MG,1MG,2MG AND 3 MG.
     Route: 048
     Dates: start: 2000, end: 2003

REACTIONS (4)
  - Gynaecomastia [Unknown]
  - Suicide attempt [Unknown]
  - Overdose [Unknown]
  - Obesity [Unknown]

NARRATIVE: CASE EVENT DATE: 2014
